FAERS Safety Report 6622388-3 (Version None)
Quarter: 2010Q1

REPORT INFORMATION
  Report Type: 
  Country: None (occurrence: None)
  Receive Date: 20100310
  Receipt Date: 20100127
  Transmission Date: 20100710
  Serious: No
  Sender: FDA-Public Use
  Company Number: US-BIOGENIDEC-2010BI002730

PATIENT
  Age: 20 Year
  Sex: Male

DRUGS (4)
  1. AVONEX [Suspect]
     Indication: GENERAL SYMPTOM
     Route: 030
     Dates: start: 20090301
  2. AVONEX [Suspect]
     Route: 030
  3. AVONEX [Suspect]
     Route: 030
  4. AVONEX [Suspect]
     Route: 030

REACTIONS (2)
  - INSOMNIA [None]
  - MUSCULOSKELETAL CHEST PAIN [None]
